FAERS Safety Report 5506199-8 (Version None)
Quarter: 2007Q4

REPORT INFORMATION
  Report Type: 
  Country: None (occurrence: None)
  Receive Date: 20071102
  Receipt Date: 20071102
  Transmission Date: 20080405
  Serious: No
  Sender: FDA-Public Use
  Company Number: None

PATIENT
  Age: 82 Year
  Sex: Male

DRUGS (1)
  1. LEFLUNOMIDE [Suspect]
     Dosage: 10MG EVERY DAY PO
     Route: 048
     Dates: start: 20070328, end: 20070501

REACTIONS (1)
  - HEADACHE [None]
